FAERS Safety Report 6467947-6 (Version None)
Quarter: 2009Q4

REPORT INFORMATION
  Report Type: 
  Country: None (occurrence: None)
  Receive Date: 20091202
  Receipt Date: 20091123
  Transmission Date: 20100525
  Serious: Yes (Other)
  Sender: FDA-Public Use
  Company Number: FR-ABBOTT-09P-056-0605487-00

PATIENT
  Age: 59 Year
  Sex: Female

DRUGS (3)
  1. LIPANTHYL TABLETS [Suspect]
     Indication: HYPERTRIGLYCERIDAEMIA
     Route: 048
     Dates: start: 19990101, end: 20091016
  2. FEMARA [Concomitant]
     Indication: BREAST CANCER RECURRENT
     Route: 048
     Dates: start: 20070701
  3. FEMARA [Concomitant]
     Indication: PROPHYLAXIS

REACTIONS (4)
  - ARTHRALGIA [None]
  - BLOOD CREATINE PHOSPHOKINASE INCREASED [None]
  - BREAST CANCER [None]
  - MUSCLE SPASMS [None]
